FAERS Safety Report 12216584 (Version 1)
Quarter: 2016Q1

REPORT INFORMATION
  Report Type: Other
  Country: NO (occurrence: NO)
  Receive Date: 20160329
  Receipt Date: 20160329
  Transmission Date: 20160526
  Serious: Yes (Other)
  Sender: FDA-Public Use
  Company Number: NO-TAKEDA-2016TJP006169

PATIENT
  Age: 57 Year
  Sex: Female

DRUGS (1)
  1. LANSOPRAZOLE. [Suspect]
     Active Substance: LANSOPRAZOLE
     Indication: GASTROOESOPHAGEAL REFLUX DISEASE
     Dosage: 30 MG, QD
     Route: 048
     Dates: start: 20060329

REACTIONS (2)
  - Osteoporosis [Recovering/Resolving]
  - Spinal fracture [Recovering/Resolving]

NARRATIVE: CASE EVENT DATE: 2014
